FAERS Safety Report 18561031 (Version 2)
Quarter: 2021Q1

REPORT INFORMATION
  Report Type: Spontaneous
  Country: DE (occurrence: DE)
  Receive Date: 20201130
  Receipt Date: 20210121
  Transmission Date: 20210419
  Serious: Yes (Hospitalization, Other)
  Sender: FDA-Public Use
  Company Number: DE-GUERBET-DE-20200121

PATIENT
  Age: 70 Year
  Sex: Male
  Weight: 84 kg

DRUGS (1)
  1. DOTAREM [Suspect]
     Active Substance: GADOTERATE MEGLUMINE
     Indication: MAGNETIC RESONANCE IMAGING BRAIN
     Route: 042
     Dates: start: 20200505, end: 20200505

REACTIONS (22)
  - Cerebrovascular accident [Unknown]
  - Myocardial ischaemia [Unknown]
  - Language disorder [Unknown]
  - Unresponsive to stimuli [Not Recovered/Not Resolved]
  - Disturbance in attention [Not Recovered/Not Resolved]
  - Erectile dysfunction [Unknown]
  - Visual impairment [Unknown]
  - Dry eye [Unknown]
  - Eye irritation [Unknown]
  - Oedema [Unknown]
  - Anal inflammation [Unknown]
  - Motor dysfunction [Not Recovered/Not Resolved]
  - Cardiac failure [Unknown]
  - Memory impairment [Not Recovered/Not Resolved]
  - Pruritus [Not Recovered/Not Resolved]
  - Somnolence [Not Recovered/Not Resolved]
  - Arrhythmia [Unknown]
  - Impaired healing [Unknown]
  - Immune system disorder [Unknown]
  - Loss of libido [Unknown]
  - Memory impairment [Not Recovered/Not Resolved]
  - Dizziness [Unknown]

NARRATIVE: CASE EVENT DATE: 2020
